FAERS Safety Report 22957138 (Version 2)
Quarter: 2023Q4

REPORT INFORMATION
  Report Type: Spontaneous
  Country: US (occurrence: None)
  Receive Date: 20230919
  Receipt Date: 20231005
  Transmission Date: 20240110
  Serious: Yes (Other)
  Sender: FDA-Public Use
  Company Number: 2023A210647

PATIENT
  Sex: Male

DRUGS (1)
  1. EVUSHELD [Suspect]
     Active Substance: CILGAVIMAB\TIXAGEVIMAB
     Route: 030
     Dates: start: 20220825

REACTIONS (4)
  - Leukaemia [Unknown]
  - COVID-19 [Unknown]
  - Product dose omission issue [Unknown]
  - Drug ineffective [Unknown]
